FAERS Safety Report 5560416-7 (Version None)
Quarter: 2007Q4

REPORT INFORMATION
  Report Type: 
  Country: None (occurrence: None)
  Receive Date: 20071215
  Receipt Date: 20071107
  Transmission Date: 20080405
  Serious: No
  Sender: FDA-Public Use
  Company Number: US-ABBOTT-07P-163-0424238-00

PATIENT
  Sex: Female
  Weight: 68.1 kg

DRUGS (5)
  1. HUMIRA [Suspect]
     Indication: CROHN'S DISEASE
     Route: 058
     Dates: start: 20060101, end: 20070301
  2. HUMIRA [Suspect]
     Route: 058
     Dates: start: 20070301
  3. HUMIRA [Suspect]
     Route: 058
     Dates: start: 20060101, end: 20060101
  4. HUMIRA [Suspect]
     Route: 058
     Dates: start: 20060101, end: 20060101
  5. TENORETIC 100 [Concomitant]
     Indication: HYPERTENSION
     Route: 048

REACTIONS (4)
  - DRUG INEFFECTIVE [None]
  - INJECTION SITE ERYTHEMA [None]
  - INJECTION SITE PAPULE [None]
  - INJECTION SITE REACTION [None]
